FAERS Safety Report 4309500-6 (Version None)
Quarter: 2004Q1

REPORT INFORMATION
  Report Type: 
  Country: None (occurrence: None)
  Receive Date: 20040227
  Receipt Date: 20010731
  Transmission Date: 20041129
  Serious: Yes (Death, Other)
  Sender: FDA-Public Use
  Company Number: 10940609

PATIENT
  Age: 25 Year
  Sex: Female

DRUGS (1)
  1. STADOL [Suspect]
     Indication: PAIN
     Route: 042
     Dates: start: 19970526

REACTIONS (6)
  - DEPENDENCE [None]
  - DRUG DEPENDENCE [None]
  - DRUG EXPOSURE DURING PREGNANCY [None]
  - INTRA-UTERINE DEATH [None]
  - PREMATURE LABOUR [None]
  - STILLBIRTH [None]
